FAERS Safety Report 17811279 (Version 1)
Quarter: 2020Q2

REPORT INFORMATION
  Report Type: Spontaneous
  Country: US (occurrence: US)
  Receive Date: 20200521
  Receipt Date: 20200521
  Transmission Date: 20200714
  Serious: Yes (Other)
  Sender: FDA-Public Use
  Company Number: US-PFIZER INC-2020201092

PATIENT
  Sex: Female

DRUGS (2)
  1. MORTIN [Suspect]
     Active Substance: SULFAMETHOXAZOLE\TRIMETHOPRIM
     Dosage: UNK
  2. LYRICA [Suspect]
     Active Substance: PREGABALIN
     Dosage: UNK

REACTIONS (10)
  - Sciatica [Unknown]
  - Gait disturbance [Unknown]
  - Dysstasia [Unknown]
  - Constipation [Unknown]
  - Visual impairment [Unknown]
  - Sitting disability [Unknown]
  - Sciatic nerve injury [Unknown]
  - Pain [Unknown]
  - Macular degeneration [Unknown]
  - Pain in extremity [Unknown]
